FAERS Safety Report 8010028-0 (Version None)
Quarter: 2011Q4

REPORT INFORMATION
  Report Type: 
  Country: None (occurrence: None)
  Receive Date: 20111221
  Receipt Date: 20111208
  Transmission Date: 20120403
  Serious: Yes (Hospitalization)
  Sender: FDA-Public Use
  Company Number: JPI-P-018675

PATIENT
  Age: 33 Year
  Sex: Female

DRUGS (7)
  1. XYREM [Suspect]
     Indication: PRODUCT USED FOR UNKNOWN INDICATION
     Dosage: 3 GM (1.5 GM, 2 IN 1 D), ORAL 4.5 GM (2.25 GM, 2 IN 1 D), ORAL 6 GM (3 GM, 2 IN 1 D), ORAL 9 GM (4.5
     Route: 048
     Dates: start: 20060407, end: 20080224
  2. XYREM [Suspect]
     Indication: PRODUCT USED FOR UNKNOWN INDICATION
     Dosage: 3 GM (1.5 GM, 2 IN 1 D), ORAL 4.5 GM (2.25 GM, 2 IN 1 D), ORAL 6 GM (3 GM, 2 IN 1 D), ORAL 9 GM (4.5
     Route: 048
     Dates: start: 20040402, end: 20040531
  3. XYREM [Suspect]
     Indication: PRODUCT USED FOR UNKNOWN INDICATION
     Dosage: 3 GM (1.5 GM, 2 IN 1 D), ORAL 4.5 GM (2.25 GM, 2 IN 1 D), ORAL 6 GM (3 GM, 2 IN 1 D), ORAL 9 GM (4.5
     Route: 048
     Dates: start: 20040601, end: 20060406
  4. XYREM [Suspect]
     Indication: PRODUCT USED FOR UNKNOWN INDICATION
     Dosage: 3 GM (1.5 GM, 2 IN 1 D), ORAL 4.5 GM (2.25 GM, 2 IN 1 D), ORAL 6 GM (3 GM, 2 IN 1 D), ORAL 9 GM (4.5
     Route: 048
     Dates: start: 20080225, end: 20080323
  5. XYREM [Suspect]
     Indication: PRODUCT USED FOR UNKNOWN INDICATION
     Dosage: 3 GM (1.5 GM, 2 IN 1 D), ORAL 4.5 GM (2.25 GM, 2 IN 1 D), ORAL 6 GM (3 GM, 2 IN 1 D), ORAL 9 GM (4.5
     Route: 048
     Dates: start: 20040303, end: 20040401
  6. XYREM [Suspect]
     Indication: PRODUCT USED FOR UNKNOWN INDICATION
     Dosage: 3 GM (1.5 GM, 2 IN 1 D), ORAL 4.5 GM (2.25 GM, 2 IN 1 D), ORAL 6 GM (3 GM, 2 IN 1 D), ORAL 9 GM (4.5
     Route: 048
     Dates: start: 20111208
  7. XYREM [Suspect]
     Indication: PRODUCT USED FOR UNKNOWN INDICATION
     Dosage: 3 GM (1.5 GM, 2 IN 1 D), ORAL 4.5 GM (2.25 GM, 2 IN 1 D), ORAL 6 GM (3 GM, 2 IN 1 D), ORAL 9 GM (4.5
     Route: 048
     Dates: start: 20080324, end: 20111207

REACTIONS (1)
  - POSTOPERATIVE THROMBOSIS [None]
